FAERS Safety Report 14917797 (Version 1)
Quarter: 2018Q2

REPORT INFORMATION
  Report Type: Spontaneous
  Country: IT (occurrence: IT)
  Receive Date: 20180521
  Receipt Date: 20180521
  Transmission Date: 20180711
  Serious: Yes (Hospitalization, Other)
  Sender: FDA-Public Use
  Company Number: IT-009507513-1805ITA007642

PATIENT

DRUGS (6)
  1. PREDNISONE. [Concomitant]
     Active Substance: PREDNISONE
     Indication: PRODUCT USED FOR UNKNOWN INDICATION
     Dosage: UNK
     Route: 065
  2. ICLUSIG [Suspect]
     Active Substance: PONATINIB
     Indication: CHRONIC MYELOID LEUKAEMIA
     Dosage: 15 MG, 4X/WEEK
     Route: 048
     Dates: start: 20170725, end: 20170813
  3. ICLUSIG [Suspect]
     Active Substance: PONATINIB
     Dosage: 15 MG, 4X/WEEK
     Route: 048
     Dates: start: 20170927
  4. APIXABAN [Concomitant]
     Active Substance: APIXABAN
     Indication: PRODUCT USED FOR UNKNOWN INDICATION
     Dosage: UNK
     Route: 065
  5. INTRON A [Suspect]
     Active Substance: INTERFERON ALFA-2B
     Indication: EOSINOPHILIC GRANULOMATOSIS WITH POLYANGIITIS
     Dosage: UNK
     Route: 065
     Dates: start: 20160928, end: 20170813
  6. INTRON A [Suspect]
     Active Substance: INTERFERON ALFA-2B
     Dosage: UNK
     Route: 065
     Dates: start: 20170927

REACTIONS (5)
  - Enterococcus test positive [Unknown]
  - Off label use [Unknown]
  - Pneumonia [Recovered/Resolved]
  - Sepsis [Recovered/Resolved]
  - Chronic myeloid leukaemia [Unknown]

NARRATIVE: CASE EVENT DATE: 20170813
